FAERS Safety Report 25422695 (Version 1)
Quarter: 2025Q2

REPORT INFORMATION
  Report Type: Spontaneous
  Country: US (occurrence: US)
  Receive Date: 20250611
  Receipt Date: 20250611
  Transmission Date: 20250716
  Serious: Yes (Other)
  Sender: BAYER HEALTHCARE LLC
  Company Number: US-BAYER-2025A074277

PATIENT
  Sex: Female

DRUGS (1)
  1. CORICIDIN HBP MAXIMUM STRENGTH COLD FLU AND CHEST CONGESTION [Suspect]
     Active Substance: ACETAMINOPHEN\GUAIFENESIN
     Indication: Product used for unknown indication
     Route: 048

REACTIONS (1)
  - Foreign body in throat [Unknown]
